FAERS Safety Report 5193288-3 (Version None)
Quarter: 2006Q4

REPORT INFORMATION
  Report Type: 
  Country: None (occurrence: None)
  Receive Date: 20061228
  Receipt Date: 20060823
  Transmission Date: 20070319
  Serious: No
  Sender: FDA-Public Use
  Company Number: US-GLAXOSMITHKLINE-A0617819A

PATIENT
  Age: 85 Year
  Sex: Male

DRUGS (6)
  1. AVODART [Suspect]
     Indication: BENIGN PROSTATIC HYPERPLASIA
     Dosage: .5MG PER DAY
     Route: 048
     Dates: start: 20051126
  2. LOPRESSOR [Concomitant]
  3. ISOSORBIDE [Concomitant]
  4. FLOMAX [Concomitant]
  5. LEXAPRO [Concomitant]
  6. ZOCOR [Concomitant]

REACTIONS (1)
  - THERAPEUTIC RESPONSE DECREASED [None]
